FAERS Safety Report 11391455 (Version 1)
Quarter: 2015Q3

REPORT INFORMATION
  Report Type: Spontaneous
  Country: GB (occurrence: GB)
  Receive Date: 20150818
  Receipt Date: 20150818
  Transmission Date: 20151125
  Serious: Yes (Disabling)
  Sender: FDA-Public Use
  Company Number: GB-WATSON-2015-17163

PATIENT
  Age: 51 Year
  Sex: Female
  Weight: 81.64 kg

DRUGS (2)
  1. LAMOTRIGINE (UNKNOWN) [Suspect]
     Active Substance: LAMOTRIGINE
     Dosage: 125 MG, BID
     Route: 048
  2. LAMOTRIGINE (UNKNOWN) [Suspect]
     Active Substance: LAMOTRIGINE
     Indication: GENERALISED TONIC-CLONIC SEIZURE
     Dosage: 150 MG, UNK
     Route: 048
     Dates: start: 20150720

REACTIONS (2)
  - Circadian rhythm sleep disorder [Not Recovered/Not Resolved]
  - Fatigue [Unknown]
